FAERS Safety Report 15487870 (Version 2)
Quarter: 2018Q4

REPORT INFORMATION
  Report Type: Spontaneous
  Country: JP (occurrence: JP)
  Receive Date: 20181011
  Receipt Date: 20181012
  Transmission Date: 20190205
  Serious: Yes (Death, Other)
  Sender: FDA-Public Use
  Company Number: JP-SA-2018SA273544

PATIENT
  Age: 74 Year
  Sex: Male

DRUGS (2)
  1. PREDNISOLONE. [Concomitant]
     Active Substance: PREDNISOLONE
     Indication: PRODUCT USED FOR UNKNOWN INDICATION
     Dosage: 10 MG
     Route: 065
  2. JEVTANA [Suspect]
     Active Substance: CABAZITAXEL
     Indication: HORMONE-REFRACTORY PROSTATE CANCER
     Dosage: 20 MG/M2
     Route: 041

REACTIONS (8)
  - Fournier^s gangrene [Fatal]
  - Scrotal swelling [Fatal]
  - Decreased appetite [Fatal]
  - Malaise [Fatal]
  - Loss of consciousness [Fatal]
  - Subcutaneous emphysema [Fatal]
  - Pyrexia [Fatal]
  - Cardio-respiratory arrest [Fatal]
